FAERS Safety Report 18683717 (Version 1)
Quarter: 2020Q4

REPORT INFORMATION
  Report Type: Spontaneous
  Country: US (occurrence: US)
  Receive Date: 20201230
  Receipt Date: 20201230
  Transmission Date: 20210114
  Serious: Yes (Hospitalization)
  Sender: FDA-Public Use
  Company Number: US-BAYER-2020-284752

PATIENT
  Age: 55 Year
  Sex: Male
  Weight: 73.6 kg

DRUGS (12)
  1. HYDROCHLOROTHIAZIDE. [Concomitant]
     Active Substance: HYDROCHLOROTHIAZIDE
  2. LORAZEPAM. [Concomitant]
     Active Substance: LORAZEPAM
  3. TOLTERODINE [Concomitant]
     Active Substance: TOLTERODINE
  4. LOSARTAN. [Concomitant]
     Active Substance: LOSARTAN
  5. PANCRELIPASE. [Concomitant]
     Active Substance: PANCRELIPASE
  6. METOPROLOL. [Concomitant]
     Active Substance: METOPROLOL
  7. PREDNISONE. [Concomitant]
     Active Substance: PREDNISONE
  8. TAMSULOSIN [Concomitant]
     Active Substance: TAMSULOSIN
  9. OMEPRAZOLE. [Concomitant]
     Active Substance: OMEPRAZOLE
  10. OXYCODONE [Concomitant]
     Active Substance: OXYCODONE
  11. GABAPENTIN. [Concomitant]
     Active Substance: GABAPENTIN
  12. ACETYLSALICYLIC ACID [Suspect]
     Active Substance: ASPIRIN

REACTIONS (3)
  - Shock haemorrhagic [None]
  - Pancreatic haemorrhage [None]
  - Gastroduodenal haemorrhage [None]
